FAERS Safety Report 8397760-4 (Version None)
Quarter: 2012Q2

REPORT INFORMATION
  Report Type: 
  Country: None (occurrence: None)
  Receive Date: 20120531
  Receipt Date: 20120525
  Transmission Date: 20120825
  Serious: Yes (Hospitalization, Other)
  Sender: FDA-Public Use
  Company Number: IE-BAYER-2012-025911

PATIENT
  Age: 33 Year
  Sex: Male

DRUGS (1)
  1. BETASERON [Suspect]
     Indication: RELAPSING-REMITTING MULTIPLE SCLEROSIS
     Dosage: 250 G, QOD
     Route: 058
     Dates: start: 20110221

REACTIONS (3)
  - CHEST PAIN [None]
  - CIRCULATORY COLLAPSE [None]
  - PULMONARY THROMBOSIS [None]
